FAERS Safety Report 6203843-7 (Version None)
Quarter: 2009Q2

REPORT INFORMATION
  Report Type: 
  Country: None (occurrence: None)
  Receive Date: 20090527
  Receipt Date: 20090518
  Transmission Date: 20091009
  Serious: Yes (Other)
  Sender: FDA-Public Use
  Company Number: GB-PFIZER INC-2009214260

PATIENT

DRUGS (2)
  1. ARTHROTEC [Suspect]
     Dosage: UNK
  2. PREMARIN [Concomitant]
     Indication: HORMONE REPLACEMENT THERAPY

REACTIONS (9)
  - CIRCULATORY COLLAPSE [None]
  - DIARRHOEA [None]
  - DYSPNOEA [None]
  - FACE INJURY [None]
  - FALL [None]
  - HEAD INJURY [None]
  - LIP SWELLING [None]
  - PRURITUS [None]
  - TOOTH LOSS [None]
